FAERS Safety Report 10298610 (Version 2)
Quarter: 2014Q3

REPORT INFORMATION
  Report Type: Spontaneous
  Country: US (occurrence: US)
  Receive Date: 20140711
  Receipt Date: 20140711
  Transmission Date: 20150326
  Serious: No
  Sender: FDA-Public Use
  Company Number: US-GILEAD-2013-0078340

PATIENT
  Sex: Male

DRUGS (4)
  1. ADCIRCA [Concomitant]
     Active Substance: TADALAFIL
  2. LETAIRIS [Suspect]
     Active Substance: AMBRISENTAN
     Indication: PULMONARY HYPERTENSION
     Dosage: 5 MG, QD
     Route: 048
     Dates: start: 20130415
  3. LETAIRIS [Suspect]
     Active Substance: AMBRISENTAN
     Indication: SARCOIDOSIS
  4. TYVASO [Concomitant]
     Active Substance: TREPROSTINIL

REACTIONS (1)
  - Rash [Unknown]
